FAERS Safety Report 17814403 (Version 2)
Quarter: 2020Q4

REPORT INFORMATION
  Report Type: Report from Study
  Country: US (occurrence: US)
  Receive Date: 20200522
  Receipt Date: 20201124
  Transmission Date: 20210113
  Serious: Yes (Hospitalization, Other)
  Sender: FDA-Public Use
  Company Number: US-KAMADA LIMITED-2020US002619

PATIENT

DRUGS (6)
  1. LYRICA [Concomitant]
     Active Substance: PREGABALIN
     Dosage: 175 MG, TID
     Route: 065
  2. LINZESS [Concomitant]
     Active Substance: LINACLOTIDE
     Dosage: UNK
     Route: 065
  3. GLASSIA [Suspect]
     Active Substance: .ALPHA.1-PROTEINASE INHIBITOR HUMAN
     Indication: ALPHA-1 ANTITRYPSIN DEFICIENCY
     Dosage: 4 DF (DOSE FORM; VIALS), 1/WEEK; APPROX. 3 YEARS AGO
     Route: 042
  4. CYMBALTA [Concomitant]
     Active Substance: DULOXETINE HYDROCHLORIDE
     Indication: DEPRESSION
     Dosage: UNK
     Route: 065
  5. POTASSIUM [Concomitant]
     Active Substance: POTASSIUM
     Dosage: UNK; SUPPLEMENT FOR LEGS
     Route: 065
  6. XARELTO [Concomitant]
     Active Substance: RIVAROXABAN
     Dosage: UNK
     Route: 065

REACTIONS (7)
  - Pain [Not Recovered/Not Resolved]
  - Headache [Unknown]
  - Lip injury [Unknown]
  - Fall [Unknown]
  - Neck surgery [Unknown]
  - Suicidal ideation [Unknown]
  - Neck surgery [Unknown]

NARRATIVE: CASE EVENT DATE: 20200306
